FAERS Safety Report 6984990-9 (Version None)
Quarter: 2010Q3

REPORT INFORMATION
  Report Type: 
  Country: None (occurrence: None)
  Receive Date: 20100915
  Receipt Date: 20100802
  Transmission Date: 20110219
  Serious: Yes (Hospitalization, Other)
  Sender: FDA-Public Use
  Company Number: PHEH2007US05483

PATIENT
  Sex: Female
  Weight: 92.517 kg

DRUGS (56)
  1. AREDIA [Suspect]
     Dosage: 90MG EVERY MONTH
     Route: 042
     Dates: start: 19980627
  2. ZOMETA [Suspect]
     Dosage: MONTHLY
     Dates: start: 20011201
  3. BEXTRA [Concomitant]
  4. COUMADIN [Concomitant]
     Dosage: 2.5MG DAILY
  5. LORTAB [Concomitant]
     Dosage: 7.5MG AS NEEDED
  6. AMBIEN [Concomitant]
     Dosage: 10MG AT BEDTIME
  7. PRILOSEC [Concomitant]
     Dosage: 20MG AS NEEDED
  8. MIRALAX [Concomitant]
     Dosage: AS NEEDED
  9. POTASSIUM [Concomitant]
     Dosage: 20 MEQ DAILY
  10. MS CONTIN [Concomitant]
     Dosage: 30MG TWICE DAILY
  11. CHROMAGEN [Concomitant]
     Dosage: DAILY
  12. PROCRIT                            /00909301/ [Concomitant]
     Dosage: 40, 000 UNITS WEEKLY
  13. SENOKOT                                 /UNK/ [Concomitant]
     Dosage: AS NEEDED
  14. DECADRON [Concomitant]
  15. LIPITOR [Concomitant]
  16. DURAGESIC-100 [Concomitant]
     Dosage: 50 MCG, EVERY 72 HOURS
  17. LEVAQUIN [Concomitant]
     Dosage: 500 MG DAILY
  18. COMPAZINE [Concomitant]
     Dosage: UNK, PRN
  19. PEPCID [Concomitant]
     Dosage: 40 MG, AS NEEDED
  20. K-DUR [Concomitant]
     Dosage: 20 MEQ DAILY
  21. XANAX [Concomitant]
     Dosage: 0.5MG, ONE
     Route: 048
  22. TYLENOL [Concomitant]
     Dosage: UNK,
  23. SEPTRA DS [Concomitant]
     Dosage: UNK, BID
  24. CIPRO [Concomitant]
  25. INTERFERON [Concomitant]
     Dosage: 3,000,000 UNITS THREE TIMES A WEEK
  26. FLAGYL [Concomitant]
     Dosage: 250 MG, TID
  27. PROZAC [Concomitant]
     Dosage: 20 MG
  28. LOMOTIL [Concomitant]
     Dosage: 5 MG
  29. BENADRYL ^PFIZER WARNER-LAMBERT^ [Concomitant]
     Dosage: 25 MG
  30. MORPHINE [Concomitant]
  31. ESTRACE [Concomitant]
     Dosage: 1 MG, QHS
     Route: 048
  32. NYSTATIN [Concomitant]
     Dosage: 5 ML
     Route: 048
  33. MAGNESIUM SULFATE [Concomitant]
     Dosage: PRN
  34. CHLORHEXIDINE GLUCONATE [Concomitant]
     Dosage: 15 ML, Q12H
  35. ZOVIRAX [Concomitant]
     Dosage: 200 MG, Q12H
     Route: 048
  36. ZYLOPRIM [Concomitant]
     Dosage: 300 MG, QD
     Route: 048
  37. PHENERGAN ^AVENTIS PHARMA^ [Concomitant]
     Dosage: 25 MG, Q6H
  38. SODIUM CHLORIDE [Concomitant]
  39. LASIX [Concomitant]
     Dosage: 20 MG, PRN
     Route: 042
  40. PERCOCET [Concomitant]
     Route: 048
  41. PERIDEX [Concomitant]
  42. ACYCLOVIR [Concomitant]
     Route: 048
  43. ZOFRAN [Concomitant]
     Dosage: 24 MG
     Route: 048
  44. ALLOPURINOL [Concomitant]
     Dosage: 300 MG
     Route: 048
  45. ACETAMINOPHEN [Concomitant]
     Dosage: 650 MG
     Route: 048
  46. PROMETHAZINE [Concomitant]
     Route: 042
  47. ALKERAN [Concomitant]
     Dosage: 172 MG
  48. DIPHENHYDRAMINE HCL [Concomitant]
     Route: 042
  49. DOCUSATE [Concomitant]
     Dosage: 100 MG, BID
  50. PENTAZOCINE [Concomitant]
     Dosage: 30 MG
     Route: 042
  51. ATROPIN [Concomitant]
     Dosage: PRN
     Route: 048
  52. SIMETHICONE [Concomitant]
     Dosage: PRN
     Route: 048
  53. DICYCLOMINE [Concomitant]
     Dosage: PRN
     Route: 048
  54. NEUPOGEN [Concomitant]
  55. VINCRISTINE [Concomitant]
  56. ADRIAMYCIN PFS [Concomitant]

REACTIONS (41)
  - ANXIETY [None]
  - ARTHRALGIA [None]
  - ASTHENIA [None]
  - ASTHMA [None]
  - AZOTAEMIA [None]
  - BACK PAIN [None]
  - BLOOD ALKALINE PHOSPHATASE INCREASED [None]
  - BLOOD CREATININE INCREASED [None]
  - CHEST PAIN [None]
  - COMPRESSION FRACTURE [None]
  - CONSTIPATION [None]
  - DYSPEPSIA [None]
  - DYSPHAGIA [None]
  - DYSPNOEA [None]
  - FATIGUE [None]
  - HYPERTENSION [None]
  - HYPOAESTHESIA [None]
  - HYPOKALAEMIA [None]
  - INJURY [None]
  - IRRITABILITY [None]
  - LIGHT CHAIN ANALYSIS INCREASED [None]
  - MULTIPLE MYELOMA [None]
  - MUSCLE SPASMS [None]
  - MUSCULOSKELETAL STIFFNESS [None]
  - MYALGIA [None]
  - NASAL CONGESTION [None]
  - NAUSEA [None]
  - NOCTURIA [None]
  - OESOPHAGEAL CANDIDIASIS [None]
  - OESOPHAGEAL PAIN [None]
  - OESOPHAGEAL STENOSIS [None]
  - ORAL HERPES [None]
  - ORAL PAIN [None]
  - OROPHARYNGEAL PAIN [None]
  - OSTEOLYSIS [None]
  - OSTEONECROSIS OF JAW [None]
  - PAIN [None]
  - PAIN IN EXTREMITY [None]
  - PROTEINURIA [None]
  - PYREXIA [None]
  - RENAL FAILURE [None]
